FAERS Safety Report 10247998 (Version 1)
Quarter: 2014Q2

REPORT INFORMATION
  Report Type: Spontaneous
  Country: FR (occurrence: FR)
  Receive Date: 20140619
  Receipt Date: 20140619
  Transmission Date: 20141212
  Serious: Yes (Other)
  Sender: FDA-Public Use
  Company Number: FR-PFIZER INC-2014164017

PATIENT
  Age: 80 Year
  Sex: Male

DRUGS (6)
  1. LYRICA [Suspect]
     Indication: PRODUCT USED FOR UNKNOWN INDICATION
     Dosage: UNK
     Route: 048
     Dates: start: 201401
  2. ATARAX [Suspect]
     Indication: PRODUCT USED FOR UNKNOWN INDICATION
     Dosage: UNK
     Route: 048
     Dates: start: 201401
  3. TADENAN [Concomitant]
  4. FOLIC ACID [Concomitant]
  5. KARDEGIC [Concomitant]
  6. EZETROL [Concomitant]
     Dosage: UNK
     Dates: end: 201401

REACTIONS (3)
  - Tongue oedema [Recovering/Resolving]
  - Lip oedema [Recovering/Resolving]
  - Oedema genital [Recovering/Resolving]
